FAERS Safety Report 7008930-1 (Version None)
Quarter: 2010Q3

REPORT INFORMATION
  Report Type: 
  Country: None (occurrence: None)
  Receive Date: 20100923
  Receipt Date: 20100913
  Transmission Date: 20110219
  Serious: Yes (Other)
  Sender: FDA-Public Use
  Company Number: PHHY2010CA55339

PATIENT
  Sex: Female

DRUGS (2)
  1. ACLASTA [Suspect]
     Dosage: 5MG/100ML
     Route: 042
  2. ZOMETA [Suspect]
     Dosage: 4 MG EVERY 4 WEEKS
     Route: 042
     Dates: start: 20100814

REACTIONS (5)
  - CARBOHYDRATE ANTIGEN 125 INCREASED [None]
  - DIARRHOEA [None]
  - DRUG DISPENSING ERROR [None]
  - HOT FLUSH [None]
  - VOMITING [None]
